FAERS Safety Report 14648070 (Version 1)
Quarter: 2018Q1

REPORT INFORMATION
  Report Type: Spontaneous
  Country: US (occurrence: US)
  Receive Date: 20180315
  Receipt Date: 20180315
  Transmission Date: 20180509
  Serious: No
  Sender: FDA-Public Use
  Company Number: None

PATIENT
  Age: 70 Year
  Sex: Male
  Weight: 108.86 kg

DRUGS (2)
  1. VANCOMYCIN [Suspect]
     Active Substance: VANCOMYCIN
     Indication: CELLULITIS
     Route: 042
     Dates: start: 20170308, end: 20170311
  2. IODIXANOL. [Suspect]
     Active Substance: IODIXANOL
     Indication: IMAGING PROCEDURE
     Dates: start: 20170309, end: 20170310

REACTIONS (3)
  - Blood urea increased [None]
  - Acute kidney injury [None]
  - Blood creatinine increased [None]

NARRATIVE: CASE EVENT DATE: 20170313
